FAERS Safety Report 22519437 (Version 1)
Quarter: 2023Q2

REPORT INFORMATION
  Report Type: Report from Study
  Country: US (occurrence: US)
  Receive Date: 20230605
  Receipt Date: 20230605
  Transmission Date: 20230721
  Serious: Yes (Other)
  Sender: FDA-Public Use
  Company Number: US-ABBVIE-5275965

PATIENT
  Age: 54 Year
  Sex: Female

DRUGS (2)
  1. SKYRIZI [Suspect]
     Active Substance: RISANKIZUMAB-RZAA
     Indication: Psoriasis
     Route: 058
     Dates: start: 2021
  2. SKYRIZI [Suspect]
     Active Substance: RISANKIZUMAB-RZAA
     Indication: Psoriatic arthropathy
     Dosage: SKYRIZI 150 MG/ML SUBCUTANEOUS PEN AT WEEK 0, WEEK 4, AND EVERY 12 WEEKS THEREAFTER?? FORM STRENG...
     Route: 058
     Dates: start: 20230526

REACTIONS (2)
  - Liver transplant [Unknown]
  - Psoriasis [Unknown]

NARRATIVE: CASE EVENT DATE: 20210301
